FAERS Safety Report 8424961-9 (Version None)
Quarter: 2012Q2

REPORT INFORMATION
  Report Type: 
  Country: None (occurrence: None)
  Receive Date: 20120611
  Receipt Date: 20120606
  Transmission Date: 20120825
  Serious: Yes (Other)
  Sender: FDA-Public Use
  Company Number: DE-AMGEN-DEUSP2012013491

PATIENT
  Age: 41 Year
  Sex: Female
  Weight: 70 kg

DRUGS (7)
  1. TAMOXIFEN CITRATE [Concomitant]
     Dosage: 20 MG, UNK
     Route: 048
     Dates: start: 20050201, end: 20120301
  2. FASLODEX [Concomitant]
     Indication: METASTASIS
     Dosage: 500 MG, QMO
     Route: 058
     Dates: start: 20111101
  3. XGEVA [Suspect]
     Indication: PROPHYLAXIS
     Dosage: 120 MG, Q4WK
     Route: 058
     Dates: start: 20110901
  4. PROLIA [Suspect]
     Indication: PROPHYLAXIS
     Dosage: 120 MG, QMO
     Route: 058
     Dates: start: 20110401, end: 20110801
  5. LEUPROLIDE ACETATE [Concomitant]
     Dosage: UNK UNK, Q6MO
     Route: 058
     Dates: start: 20050201, end: 20110601
  6. XELODA [Concomitant]
     Dosage: UNK
     Route: 048
     Dates: start: 20101001, end: 20120301
  7. LAPATINIB [Concomitant]
     Dosage: UNK
     Route: 048
     Dates: start: 20101001, end: 20120301

REACTIONS (1)
  - METASTASES TO BONE [None]
